FAERS Safety Report 25093865 (Version 1)
Quarter: 2025Q1

REPORT INFORMATION
  Report Type: Report from Study
  Country: US (occurrence: US)
  Receive Date: 20250319
  Receipt Date: 20250319
  Transmission Date: 20250408
  Serious: No
  Sender: SUNOVION
  Company Number: US-SUMITOMO PHARMA SWITZERLAND GMBH-2025SPA002214

PATIENT

DRUGS (7)
  1. ORGOVYX [Suspect]
     Active Substance: RELUGOLIX
     Indication: Prostate cancer
     Dosage: 360 MG, SINGLE
     Route: 048
     Dates: start: 20250114, end: 20250114
  2. ORGOVYX [Suspect]
     Active Substance: RELUGOLIX
     Dosage: 120 MG, QD
     Route: 048
     Dates: start: 20250115
  3. Calcium + magnesium + zink [Concomitant]
     Route: 048
  4. PHYTOSTEROLS [Concomitant]
     Active Substance: PHYTOSTEROLS
     Route: 048
  5. Coq10 + omega 3 [Concomitant]
     Route: 048
  6. LATANOPROST [Concomitant]
     Active Substance: LATANOPROST
     Route: 047
  7. VITAMIN B3 [Concomitant]
     Active Substance: NIACIN
     Route: 048

REACTIONS (2)
  - Arthralgia [Unknown]
  - Myalgia [Unknown]
